FAERS Safety Report 13894336 (Version 1)
Quarter: 2017Q3

REPORT INFORMATION
  Report Type: Spontaneous
  Country: US (occurrence: US)
  Receive Date: 20170816
  Receipt Date: 20170816
  Transmission Date: 20171127
  Serious: No
  Sender: FDA-Public Use
  Company Number: None

PATIENT
  Age: 39 Year
  Sex: Female
  Weight: 72 kg

DRUGS (5)
  1. VYVANSE [Concomitant]
     Active Substance: LISDEXAMFETAMINE DIMESYLATE
  2. METOPROLOL TARTRATE 25MG TABLETS [Suspect]
     Active Substance: METOPROLOL TARTRATE
     Indication: MIGRAINE
     Dosage: ?          OTHER STRENGTH:?;QUANTITY:60 TABLET(S);?
     Route: 048
     Dates: start: 20170809, end: 20170810
  3. ARMOUR THYROID [Concomitant]
     Active Substance: THYROID, PORCINE
  4. NORCO [Concomitant]
     Active Substance: ACETAMINOPHEN\HYDROCODONE BITARTRATE
  5. PROSOM [Concomitant]
     Active Substance: ESTAZOLAM

REACTIONS (3)
  - Influenza [None]
  - Nausea [None]
  - Diarrhoea [None]

NARRATIVE: CASE EVENT DATE: 20170811
